FAERS Safety Report 11989315 (Version 2)
Quarter: 2016Q1

REPORT INFORMATION
  Report Type: Spontaneous
  Country: US (occurrence: US)
  Receive Date: 20160202
  Receipt Date: 20160310
  Transmission Date: 20160526
  Serious: Yes (Death, Other)
  Sender: FDA-Public Use
  Company Number: US-SEATTLE GENETICS-2016SGN00103

PATIENT

DRUGS (2)
  1. ADCETRIS [Suspect]
     Active Substance: BRENTUXIMAB VEDOTIN
     Indication: HODGKIN^S DISEASE RECURRENT
     Dosage: 1.8 MG/KG, UNK
     Route: 065
     Dates: start: 20131206
  2. ADCETRIS [Suspect]
     Active Substance: BRENTUXIMAB VEDOTIN
     Dosage: 300 MG, UNK
     Route: 065
     Dates: start: 20131206

REACTIONS (5)
  - Overdose [Unknown]
  - Serum sickness-like reaction [Unknown]
  - Death [Fatal]
  - Pancreatitis [Unknown]
  - Septic shock [Unknown]

NARRATIVE: CASE EVENT DATE: 20131206
